FAERS Safety Report 7667303-9 (Version None)
Quarter: 2011Q3

REPORT INFORMATION
  Report Type: 
  Country: None (occurrence: None)
  Receive Date: 20110806
  Receipt Date: 20110609
  Transmission Date: 20111222
  Serious: No
  Sender: FDA-Public Use
  Company Number: US-ABBOTT-11P-163-0731235-00

PATIENT
  Sex: Female
  Weight: 66.284 kg

DRUGS (4)
  1. NIASPAN [Suspect]
     Indication: PRODUCT USED FOR UNKNOWN INDICATION
     Dates: start: 20100101
  2. ASPIRIN [Concomitant]
     Indication: PRODUCT USED FOR UNKNOWN INDICATION
  3. UNKNOWN BP MEDICATION [Concomitant]
     Indication: BLOOD PRESSURE
  4. UNKNOWN  DM MEDICATION [Concomitant]
     Indication: DIABETES MELLITUS

REACTIONS (1)
  - PRURITUS [None]
